FAERS Safety Report 24055449 (Version 1)
Quarter: 2024Q3

REPORT INFORMATION
  Report Type: Spontaneous
  Country: US (occurrence: None)
  Receive Date: 20240703
  Receipt Date: 20240703
  Transmission Date: 20241017
  Serious: No
  Sender: Public
  Company Number: None

PATIENT
  Age: 45 Year
  Sex: Female
  Weight: 65.25 kg

DRUGS (1)
  1. METHYLPREDNISOLONE [Suspect]
     Active Substance: METHYLPREDNISOLONE
     Indication: Back pain
     Dosage: 80 MG/ML ONCE INTRAMUSCULAR
     Route: 030
     Dates: start: 20240703, end: 20240703

REACTIONS (2)
  - Product expiration date issue [None]
  - Expired product administered [None]

NARRATIVE: CASE EVENT DATE: 20240703
